FAERS Safety Report 5512981-3 (Version None)
Quarter: 2007Q4

REPORT INFORMATION
  Report Type: 
  Country: None (occurrence: None)
  Receive Date: 20071112
  Receipt Date: 20071101
  Transmission Date: 20080405
  Serious: Yes (Hospitalization)
  Sender: FDA-Public Use
  Company Number: US-AMGEN-QUU249817

PATIENT
  Sex: Female
  Weight: 81.7 kg

DRUGS (3)
  1. ENBREL [Suspect]
     Indication: RHEUMATOID ARTHRITIS
     Route: 058
     Dates: start: 20070701
  2. PREDNISONE [Suspect]
  3. METHOTREXATE [Concomitant]
     Route: 058
     Dates: start: 20030101

REACTIONS (5)
  - BACK PAIN [None]
  - CATARACT [None]
  - DISEASE PROGRESSION [None]
  - INJECTION SITE PAIN [None]
  - RHEUMATOID ARTHRITIS [None]
